FAERS Safety Report 6461248-8 (Version None)
Quarter: 2009Q4

REPORT INFORMATION
  Report Type: 
  Country: None (occurrence: None)
  Receive Date: 20091130
  Receipt Date: 20091127
  Transmission Date: 20100525
  Serious: Yes (Hospitalization)
  Sender: FDA-Public Use
  Company Number: FR-WYE-G05004909

PATIENT
  Sex: Female
  Weight: 40 kg

DRUGS (3)
  1. ADVIL LIQUI-GELS [Suspect]
     Dosage: UNKNOWN
     Route: 048
     Dates: start: 20091109, end: 20091111
  2. HEXASPRAY [Suspect]
     Dosage: UNKNOWN
     Route: 048
     Dates: start: 20091109, end: 20091111
  3. POLERY [Suspect]
     Dosage: UNKNOWN
     Route: 048
     Dates: start: 20091109, end: 20091111

REACTIONS (2)
  - OEDEMA PERIPHERAL [None]
  - URTICARIA [None]
